FAERS Safety Report 5959594-7 (Version None)
Quarter: 2008Q4

REPORT INFORMATION
  Report Type: 
  Country: None (occurrence: None)
  Receive Date: 20081120
  Receipt Date: 20081114
  Transmission Date: 20090506
  Serious: Yes (Death)
  Sender: FDA-Public Use
  Company Number: US-TEVA-166564USA

PATIENT
  Sex: Female

DRUGS (8)
  1. SALBUTAMOL SULFATE INHALATION, 0.09 MG [Suspect]
     Indication: DYSPNOEA
     Dosage: 1 PUFF QID AS NEEDED
     Route: 048
     Dates: start: 20070616, end: 20071109
  2. IPRATROPIUM BROMIDE [Concomitant]
  3. LORAZEPAM [Concomitant]
  4. MESCOLOR [Concomitant]
  5. FAMOTIDINE [Concomitant]
  6. AMLODIPINE [Concomitant]
  7. ALPRAZOLAM [Concomitant]
  8. LOMOTIL [Concomitant]

REACTIONS (5)
  - BRONCHOSPASM [None]
  - DRUG INEFFECTIVE [None]
  - DYSPNOEA [None]
  - MYOCARDIAL INFARCTION [None]
  - WHEEZING [None]
